FAERS Safety Report 24329085 (Version 1)
Quarter: 2024Q3

REPORT INFORMATION
  Report Type: Spontaneous
  Country: FR (occurrence: FR)
  Receive Date: 20240917
  Receipt Date: 20240917
  Transmission Date: 20241016
  Serious: Yes (Hospitalization)
  Sender: ANI
  Company Number: FR-ANIPHARMA-2024-FR-000165

PATIENT
  Age: 47 Year
  Sex: Female

DRUGS (7)
  1. CANDESARTAN CILEXETIL [Suspect]
     Active Substance: CANDESARTAN CILEXETIL
     Indication: Hypertension
     Dosage: 1 DF DAILY
     Route: 048
     Dates: end: 20070829
  2. AMLODIPINE BESYLATE [Suspect]
     Active Substance: AMLODIPINE BESYLATE
     Dosage: 1 DF DAILY
     Route: 048
  3. RABEPRAZOLE SODIUM [Suspect]
     Active Substance: RABEPRAZOLE SODIUM
     Dosage: 1 DF DAILY
     Route: 048
     Dates: end: 20070829
  4. FENOFIBRATE [Suspect]
     Active Substance: FENOFIBRATE
     Dosage: 160 MG DAILY
     Route: 048
  5. LEVOTHYROXINE [Suspect]
     Active Substance: LEVOTHYROXINE\LEVOTHYROXINE SODIUM
     Dosage: 1 DF DAILY
     Route: 048
  6. SINGULAIR [Suspect]
     Active Substance: MONTELUKAST SODIUM
     Dosage: 1 DF DAILY
     Route: 048
  7. AMLODIPINE BESYLATE [Concomitant]
     Active Substance: AMLODIPINE BESYLATE
     Route: 048

REACTIONS (14)
  - Haematuria [Unknown]
  - Haemolytic anaemia [Unknown]
  - Asthenia [Unknown]
  - Hepatic steatosis [Unknown]
  - Tooth infection [Unknown]
  - Dyspnoea [Unknown]
  - Dyspnoea exertional [Unknown]
  - Jaundice [Unknown]
  - Abdominal pain upper [Unknown]
  - Rash papular [Unknown]
  - Diarrhoea [Unknown]
  - Lymphoedema [Unknown]
  - Pyrexia [Recovered/Resolved]
  - Staphylococcal infection [Unknown]

NARRATIVE: CASE EVENT DATE: 20070801
